FAERS Safety Report 8085672-5 (Version None)
Quarter: 2012Q1

REPORT INFORMATION
  Report Type: 
  Country: None (occurrence: None)
  Receive Date: 20120128
  Receipt Date: 20110404
  Transmission Date: 20120608
  Serious: No
  Sender: FDA-Public Use
  Company Number: US-ABBOTT-11P-163-0716393-00

PATIENT
  Age: 46 Year
  Sex: Male

DRUGS (11)
  1. LORAZEPAM [Concomitant]
     Indication: ANXIETY
  2. IBUPROFEN [Concomitant]
     Indication: PAIN
     Dosage: PRN
  3. EXCEDRIN [Concomitant]
     Indication: PRODUCT USED FOR UNKNOWN INDICATION
     Dosage: PRN
  4. HYDROCODONE BITARTRATE AND ACETAMINOPHEN [Concomitant]
     Indication: PAIN
     Dosage: 7.5/750 AS NEEDED
  5. VENLAFAXINE HCL EXTENDED-RELEASE [Concomitant]
     Indication: ANTIDEPRESSANT THERAPY
  6. LEFLUNOMIDE [Concomitant]
     Indication: ARTHRITIS
  7. HUMIRA [Suspect]
     Indication: RHEUMATOID ARTHRITIS
     Dates: start: 20110301
  8. BENADRYL [Concomitant]
     Indication: INSOMNIA
  9. PREDNISONE TAB [Concomitant]
     Indication: RHEUMATOID ARTHRITIS
  10. LEVOTHROID [Concomitant]
     Indication: HYPOTHYROIDISM
     Dosage: 88MCG DAILY
  11. GABAPENTIN [Concomitant]
     Indication: PAIN
     Dosage: 600MG DAILY

REACTIONS (4)
  - PAIN IN EXTREMITY [None]
  - JOINT STIFFNESS [None]
  - INJECTION SITE HAEMATOMA [None]
  - ARTHRALGIA [None]
